FAERS Safety Report 9518875 (Version 1)
Quarter: 2013Q3

REPORT INFORMATION
  Report Type: Spontaneous
  Country: BR (occurrence: BR)
  Receive Date: 20130912
  Receipt Date: 20130912
  Transmission Date: 20140515
  Serious: Yes (Other)
  Sender: FDA-Public Use
  Company Number: BR-PFIZER INC-2013261250

PATIENT
  Age: 43 Year
  Sex: Female
  Weight: 55 kg

DRUGS (1)
  1. CELEBRA [Suspect]
     Indication: PAIN
     Dosage: SPORADICALLY
     Dates: start: 2010

REACTIONS (3)
  - Spinal disorder [Unknown]
  - Spinal pain [Unknown]
  - Ligament sprain [Unknown]
